FAERS Safety Report 6003584-5 (Version None)
Quarter: 2008Q4

REPORT INFORMATION
  Report Type: 
  Country: None (occurrence: None)
  Receive Date: 20081216
  Receipt Date: 20081210
  Transmission Date: 20090506
  Serious: Yes (Other)
  Sender: FDA-Public Use
  Company Number: DE-TEVA-182344USA

PATIENT
  Sex: Female
  Weight: 105 kg

DRUGS (3)
  1. PIMOZIDE TABLETS [Suspect]
     Indication: DRUG USE FOR UNKNOWN INDICATION
     Route: 065
     Dates: start: 20060805
  2. MELPERONE HYDROCHLORIDE [Concomitant]
  3. VALPROIC ACID [Concomitant]
     Route: 065

REACTIONS (6)
  - ENCOPRESIS [None]
  - HYPERHIDROSIS [None]
  - OCULOGYRIC CRISIS [None]
  - PARKINSONISM [None]
  - SEDATION [None]
  - TROUSSEAU'S SYNDROME [None]
